FAERS Safety Report 15940960 (Version 4)
Quarter: 2019Q3

REPORT INFORMATION
  Report Type: Spontaneous
  Country: US (occurrence: US)
  Receive Date: 20190208
  Receipt Date: 20190918
  Transmission Date: 20191004
  Serious: Yes (Other)
  Sender: FDA-Public Use
  Company Number: US-ASTRAZENECA-2018SF14055

PATIENT
  Age: 47 Year
  Sex: Female
  Weight: 77.1 kg

DRUGS (101)
  1. DEXILANT [Suspect]
     Active Substance: DEXLANSOPRAZOLE
     Indication: DYSPEPSIA
     Route: 065
     Dates: start: 2007, end: 2016
  2. PREVACID [Suspect]
     Active Substance: LANSOPRAZOLE
     Indication: GASTROOESOPHAGEAL REFLUX DISEASE
     Route: 065
     Dates: start: 2010, end: 2017
  3. BACLOFEN. [Concomitant]
     Active Substance: BACLOFEN
     Indication: MUSCLE RELAXANT THERAPY
  4. METHOTREXATE. [Concomitant]
     Active Substance: METHOTREXATE
     Indication: IMMUNOSUPPRESSION
  5. ENDOCET [Concomitant]
     Active Substance: ACETAMINOPHEN\OXYCODONE HYDROCHLORIDE
     Indication: PAIN
  6. PENICILLIN [Concomitant]
     Active Substance: PENICILLIN
  7. ATORVASTATIN [Concomitant]
     Active Substance: ATORVASTATIN
  8. DULOXETINE. [Concomitant]
     Active Substance: DULOXETINE
  9. METHOTREXATE. [Concomitant]
     Active Substance: METHOTREXATE
  10. MUPIROCIN. [Concomitant]
     Active Substance: MUPIROCIN
  11. CLINDAMYCIN. [Concomitant]
     Active Substance: CLINDAMYCIN
  12. PREDNISONE. [Concomitant]
     Active Substance: PREDNISONE
  13. CIMETIDINE [Concomitant]
     Active Substance: CIMETIDINE
  14. PRILOSEC [Suspect]
     Active Substance: OMEPRAZOLE MAGNESIUM
     Indication: GASTROOESOPHAGEAL REFLUX DISEASE
     Route: 048
     Dates: start: 2016, end: 2017
  15. DEXILANT [Suspect]
     Active Substance: DEXLANSOPRAZOLE
     Indication: GASTROOESOPHAGEAL REFLUX DISEASE
     Route: 048
     Dates: start: 20150714
  16. ZOLOFT [Concomitant]
     Active Substance: SERTRALINE HYDROCHLORIDE
     Indication: DEPRESSION
  17. ADVICOR [Concomitant]
     Active Substance: LOVASTATIN\NIACIN
     Indication: BLOOD CHOLESTEROL
  18. TYLENOL [Concomitant]
     Active Substance: ACETAMINOPHEN
  19. TRAMADOL. [Concomitant]
     Active Substance: TRAMADOL
  20. IBUPROFEN. [Concomitant]
     Active Substance: IBUPROFEN
  21. PROMETHAZINE [Concomitant]
     Active Substance: PROMETHAZINE HYDROCHLORIDE
  22. CHERATUSSIN [Concomitant]
     Active Substance: AMMONIUM CHLORIDE\DEXTROMETHORPHAN\SODIUM CITRATE
  23. NEXIUM [Suspect]
     Active Substance: ESOMEPRAZOLE MAGNESIUM
     Route: 048
  24. PRILOSEC OTC [Suspect]
     Active Substance: OMEPRAZOLE MAGNESIUM
     Indication: GASTROOESOPHAGEAL REFLUX DISEASE
     Route: 048
     Dates: start: 2012, end: 2016
  25. PREVACID 24 HR [Suspect]
     Active Substance: LANSOPRAZOLE
     Indication: GASTROOESOPHAGEAL REFLUX DISEASE
     Dosage: (LANSOPRAZOLE OTC)
     Route: 065
     Dates: start: 2017, end: 2019
  26. BENICAR [Concomitant]
     Active Substance: OLMESARTAN MEDOXOMIL
  27. LEXAPRO [Concomitant]
     Active Substance: ESCITALOPRAM OXALATE
  28. MORPHINE SULFATE. [Concomitant]
     Active Substance: MORPHINE SULFATE
  29. IBUPROFEN. [Concomitant]
     Active Substance: IBUPROFEN
     Indication: HEADACHE
  30. LEVAQUIN [Concomitant]
     Active Substance: LEVOFLOXACIN
  31. PROMETHAZINE [Concomitant]
     Active Substance: PROMETHAZINE HYDROCHLORIDE
  32. CODEINE [Concomitant]
     Active Substance: CODEINE
  33. TRAMADOL. [Concomitant]
     Active Substance: TRAMADOL
  34. LORATADINE. [Concomitant]
     Active Substance: LORATADINE
  35. PRILOSEC OTC [Suspect]
     Active Substance: OMEPRAZOLE MAGNESIUM
     Indication: GASTROOESOPHAGEAL REFLUX DISEASE
     Route: 048
     Dates: start: 2007, end: 2016
  36. SINGULAIR [Concomitant]
     Active Substance: MONTELUKAST SODIUM
  37. CIPROFLOXACIN. [Concomitant]
     Active Substance: CIPROFLOXACIN
  38. FLURBIPROFEN. [Concomitant]
     Active Substance: FLURBIPROFEN
  39. CLONIDINE. [Concomitant]
     Active Substance: CLONIDINE
  40. BACLOFEN. [Concomitant]
     Active Substance: BACLOFEN
  41. FLURBIPROFEN. [Concomitant]
     Active Substance: FLURBIPROFEN
  42. LITHIUM. [Concomitant]
     Active Substance: LITHIUM
  43. AMOX [Concomitant]
     Active Substance: UNSPECIFIED INGREDIENT
  44. FOLIC ACID. [Concomitant]
     Active Substance: FOLIC ACID
  45. RANITIDINE. [Concomitant]
     Active Substance: RANITIDINE
  46. PREVACID [Suspect]
     Active Substance: LANSOPRAZOLE
     Indication: GASTROOESOPHAGEAL REFLUX DISEASE
     Dosage: GENERIC (LANSOPRAZOLE)
     Route: 065
     Dates: start: 2017, end: 2018
  47. NEURONTIN [Concomitant]
     Active Substance: GABAPENTIN
  48. METRONIDAZOLE. [Concomitant]
     Active Substance: METRONIDAZOLE
  49. CIPROFLOXACIN. [Concomitant]
     Active Substance: CIPROFLOXACIN
  50. ONDANSETRON [Concomitant]
     Active Substance: ONDANSETRON
  51. METHADOSE [Concomitant]
     Active Substance: METHADONE HYDROCHLORIDE
  52. PENICILLIN [Concomitant]
     Active Substance: PENICILLIN
  53. SERTRALINE [Concomitant]
     Active Substance: SERTRALINE HYDROCHLORIDE
  54. NAPROXEN. [Concomitant]
     Active Substance: NAPROXEN
  55. XEDEC [Concomitant]
  56. ATENOLOL. [Concomitant]
     Active Substance: ATENOLOL
  57. KLOR-CON [Concomitant]
     Active Substance: POTASSIUM CHLORIDE
  58. AMLODIPINE [Concomitant]
     Active Substance: AMLODIPINE BESYLATE
  59. NEXIUM [Suspect]
     Active Substance: ESOMEPRAZOLE MAGNESIUM
     Dosage: GENERIC ESOMEPRAZOLE
     Route: 065
  60. PREVACID 24 HR [Suspect]
     Active Substance: LANSOPRAZOLE
     Indication: GASTROOESOPHAGEAL REFLUX DISEASE
     Route: 065
     Dates: start: 2012, end: 2016
  61. PREVACID 24 HR [Suspect]
     Active Substance: LANSOPRAZOLE
     Indication: GASTROOESOPHAGEAL REFLUX DISEASE
     Route: 065
     Dates: start: 2012, end: 2016
  62. DYAZIDE [Concomitant]
     Active Substance: HYDROCHLOROTHIAZIDE\TRIAMTERENE
  63. MORPHINE SULFATE. [Concomitant]
     Active Substance: MORPHINE SULFATE
  64. CARVEDILOL. [Concomitant]
     Active Substance: CARVEDILOL
  65. CYCLOBENZAPRINE. [Concomitant]
     Active Substance: CYCLOBENZAPRINE
  66. BUPROPION. [Concomitant]
     Active Substance: BUPROPION
  67. ZITHROMAX [Concomitant]
     Active Substance: AZITHROMYCIN DIHYDRATE
  68. FAMOTIDINE. [Concomitant]
     Active Substance: FAMOTIDINE
  69. PRILOSEC [Suspect]
     Active Substance: OMEPRAZOLE MAGNESIUM
     Indication: GASTROOESOPHAGEAL REFLUX DISEASE
     Route: 048
     Dates: start: 2007, end: 2016
  70. DEXILANT [Suspect]
     Active Substance: DEXLANSOPRAZOLE
     Indication: GASTROOESOPHAGEAL REFLUX DISEASE
     Route: 065
     Dates: start: 2007, end: 2016
  71. DEXILANT [Suspect]
     Active Substance: DEXLANSOPRAZOLE
     Indication: GASTROOESOPHAGEAL REFLUX DISEASE
     Route: 048
     Dates: start: 2014, end: 2016
  72. CARVEDILOL. [Concomitant]
     Active Substance: CARVEDILOL
  73. CYCLOBENZAPRINE. [Concomitant]
     Active Substance: CYCLOBENZAPRINE
  74. CLONIDINE. [Concomitant]
     Active Substance: CLONIDINE
  75. MUPIROCIN. [Concomitant]
     Active Substance: MUPIROCIN
  76. NAPROXEN. [Concomitant]
     Active Substance: NAPROXEN
  77. BEXTRA [Concomitant]
     Active Substance: VALDECOXIB
  78. LEVOTHYROXINE. [Concomitant]
     Active Substance: LEVOTHYROXINE
  79. LUNESTA [Concomitant]
     Active Substance: ESZOPICLONE
  80. WELLBUTRIN XL [Concomitant]
     Active Substance: BUPROPION HYDROCHLORIDE
  81. BUDEPRION [Concomitant]
     Active Substance: BUPROPION HYDROCHLORIDE
  82. VYTORIN [Concomitant]
     Active Substance: EZETIMIBE\SIMVASTATIN
  83. CIPROFLOXACIN. [Concomitant]
     Active Substance: CIPROFLOXACIN
  84. TRICOR [Concomitant]
     Active Substance: FENOFIBRATE
  85. CHANTIX [Concomitant]
     Active Substance: VARENICLINE TARTRATE
  86. LYRICA [Concomitant]
     Active Substance: PREGABALIN
  87. PRILOSEC [Suspect]
     Active Substance: OMEPRAZOLE MAGNESIUM
     Indication: GASTROOESOPHAGEAL REFLUX DISEASE
     Dosage: GENERIC
     Route: 065
     Dates: start: 2007, end: 2010
  88. DEXILANT [Suspect]
     Active Substance: DEXLANSOPRAZOLE
     Indication: DYSPEPSIA
     Route: 048
     Dates: start: 20150714
  89. DEXILANT [Suspect]
     Active Substance: DEXLANSOPRAZOLE
     Indication: DYSPEPSIA
     Route: 048
     Dates: start: 2014, end: 2016
  90. PREVACID [Suspect]
     Active Substance: LANSOPRAZOLE
     Indication: GASTROOESOPHAGEAL REFLUX DISEASE
     Dosage: GENERIC (LANSOPRAZOLE)
     Route: 065
     Dates: start: 2017, end: 2019
  91. ONDANSETRON [Concomitant]
     Active Substance: ONDANSETRON
  92. CLONAZEPAM. [Concomitant]
     Active Substance: CLONAZEPAM
     Indication: ANXIETY
  93. CLARINEX [Concomitant]
     Active Substance: DESLORATADINE
  94. CLOBETASOL [Concomitant]
     Active Substance: CLOBETASOL
  95. ACETAMINOPHEN. [Concomitant]
     Active Substance: ACETAMINOPHEN
  96. PATADAY [Concomitant]
     Active Substance: OLOPATADINE HYDROCHLORIDE
  97. METHYLPREDNISONE [Concomitant]
     Active Substance: METHYLPREDNISOLONE
  98. FEXOFENADINE [Concomitant]
     Active Substance: FEXOFENADINE HYDROCHLORIDE
  99. CEPHALEXIN. [Concomitant]
     Active Substance: CEPHALEXIN
  100. FUROSEMIDE. [Concomitant]
     Active Substance: FUROSEMIDE
  101. TUMS [Concomitant]
     Active Substance: CALCIUM CARBONATE

REACTIONS (1)
  - Chronic kidney disease [Not Recovered/Not Resolved]

NARRATIVE: CASE EVENT DATE: 2010
